FAERS Safety Report 13477458 (Version 1)
Quarter: 2017Q2

REPORT INFORMATION
  Report Type: Spontaneous
  Country: GB (occurrence: GB)
  Receive Date: 20170425
  Receipt Date: 20170425
  Transmission Date: 20170830
  Serious: Yes (Other)
  Sender: FDA-Public Use
  Company Number: GB-TEVA-760850ACC

PATIENT
  Age: 55 Year
  Sex: Female
  Weight: 71.21 kg

DRUGS (3)
  1. LORATADIN [Suspect]
     Active Substance: LORATADINE
     Indication: SEASONAL ALLERGY
     Dosage: 1 DOSAGE FORMS DAILY;
     Route: 048
     Dates: start: 20170323, end: 20170402
  2. FLIXOTIDE [Concomitant]
     Active Substance: FLUTICASONE PROPIONATE
  3. SERETIDE [Concomitant]
     Active Substance: FLUTICASONE PROPIONATE\SALMETEROL XINAFOATE

REACTIONS (3)
  - Wheezing [Not Recovered/Not Resolved]
  - Somnolence [Not Recovered/Not Resolved]
  - Anxiety [Not Recovered/Not Resolved]

NARRATIVE: CASE EVENT DATE: 20170323
